FAERS Safety Report 26085537 (Version 1)
Quarter: 2025Q4

REPORT INFORMATION
  Report Type: Spontaneous
  Country: CN (occurrence: None)
  Receive Date: 20251125
  Receipt Date: 20251125
  Transmission Date: 20260118
  Serious: Yes (Hospitalization)
  Sender: JIANGSU HANSOH PHARMACEUTICAL GROUP CO., LTD.
  Company Number: CN-Hansoh-20252190021690

PATIENT
  Sex: Male

DRUGS (11)
  1. PEMETREXED DISODIUM [Suspect]
     Active Substance: PEMETREXED DISODIUM
     Indication: Lung adenocarcinoma stage IV
     Dosage: 970MG,EVERY 3 WEEKS
     Route: 041
     Dates: start: 20250516, end: 20250606
  2. PEMETREXED DISODIUM [Suspect]
     Active Substance: PEMETREXED DISODIUM
     Dosage: 970MG,EVERY 3 WEEKS
     Route: 041
     Dates: start: 20250628, end: 20250628
  3. PEMETREXED DISODIUM [Suspect]
     Active Substance: PEMETREXED DISODIUM
     Dosage: 970MG,EVERY 3 WEEKS
     Route: 041
     Dates: start: 20250716, end: 20250716
  4. PEMETREXED DISODIUM [Suspect]
     Active Substance: PEMETREXED DISODIUM
     Dosage: 970MG,EVERY 3 WEEKS
     Route: 041
     Dates: start: 20250805, end: 20250805
  5. PEMETREXED DISODIUM [Suspect]
     Active Substance: PEMETREXED DISODIUM
     Dosage: 970MG,EVERY 3 WEEKS
     Route: 041
     Dates: start: 20250827, end: 20250827
  6. PEMBROLIZUMAB [Suspect]
     Active Substance: PEMBROLIZUMAB
     Indication: Lung adenocarcinoma stage IV
     Dosage: 400MG, ONCE EVERY 6 WEEKS
     Route: 041
     Dates: start: 20250516, end: 20250516
  7. PEMBROLIZUMAB [Suspect]
     Active Substance: PEMBROLIZUMAB
     Dosage: 400 MG, ONCE EVERY 6 WEEKS
     Route: 041
     Dates: start: 20250628, end: 20250628
  8. PEMBROLIZUMAB [Suspect]
     Active Substance: PEMBROLIZUMAB
     Dosage: 400 MG, ONCE EVERY 6 WEEKS
     Route: 041
     Dates: start: 20250805
  9. CARBOPLATIN [Suspect]
     Active Substance: CARBOPLATIN
     Indication: Lung adenocarcinoma stage IV
     Dosage: 750MG,EVERY 3 WEEKS
     Route: 041
     Dates: start: 20250516, end: 20250606
  10. CARBOPLATIN [Suspect]
     Active Substance: CARBOPLATIN
     Dosage: 750MG,EVERY 3 WEEKS
     Route: 041
     Dates: start: 20250628, end: 20250628
  11. CARBOPLATIN [Suspect]
     Active Substance: CARBOPLATIN
     Dosage: 750MG,EVERY 3 WEEKS
     Route: 041
     Dates: start: 20250716, end: 20250716

REACTIONS (8)
  - Genital infection male [Recovered/Resolved]
  - Decreased appetite [Recovered/Resolved]
  - Asthenia [Recovered/Resolved]
  - Chest discomfort [Recovering/Resolving]
  - Urinary occult blood positive [Recovering/Resolving]
  - Hypoproteinaemia [Not Recovered/Not Resolved]
  - Blood alkaline phosphatase increased [Unknown]
  - Anaemia [Unknown]

NARRATIVE: CASE EVENT DATE: 20250605
